FAERS Safety Report 10765374 (Version 1)
Quarter: 2015Q1

REPORT INFORMATION
  Report Type: Spontaneous
  Country: IT (occurrence: IT)
  Receive Date: 20150205
  Receipt Date: 20150205
  Transmission Date: 20150721
  Serious: Yes (Other)
  Sender: FDA-Public Use
  Company Number: IT-ASTRAZENECA-2015SE09777

PATIENT
  Age: 154 Month
  Sex: Male

DRUGS (2)
  1. SEROQUEL [Suspect]
     Active Substance: QUETIAPINE FUMARATE
     Indication: HYPERKINESIA
     Route: 048
     Dates: start: 20141029, end: 20141127
  2. ABILIFY [Concomitant]
     Active Substance: ARIPIPRAZOLE
     Indication: HYPERKINESIA
     Route: 048
     Dates: start: 20130527, end: 20141127

REACTIONS (4)
  - Product use issue [Unknown]
  - Sedation [Recovering/Resolving]
  - Depressed level of consciousness [Recovering/Resolving]
  - Increased appetite [Recovering/Resolving]

NARRATIVE: CASE EVENT DATE: 201410
